FAERS Safety Report 15954201 (Version 8)
Quarter: 2019Q2

REPORT INFORMATION
  Report Type: Report from Study
  Country: FR (occurrence: FR)
  Receive Date: 20190212
  Receipt Date: 20190422
  Transmission Date: 20190711
  Serious: Yes (Hospitalization)
  Sender: FDA-Public Use
  Company Number: FR-REGENERON PHARMACEUTICALS, INC.-2019-16661

PATIENT

DRUGS (8)
  1. LACRYVISC [Concomitant]
     Active Substance: CARBOMER
     Indication: DRY EYE
     Dosage: 1.5 MG, QD
     Route: 047
     Dates: start: 20181010
  2. AMOXICILLINE                       /00249601/ [Concomitant]
     Active Substance: AMOXICILLIN
     Indication: INFLAMMATION
     Dosage: 2 G, QD
     Route: 048
     Dates: start: 20181120
  3. CEMIPLIMAB [Suspect]
     Active Substance: CEMIPLIMAB
     Indication: BASAL CELL CARCINOMA
     Dosage: 350 MG, Q3W
     Route: 042
     Dates: start: 20181010, end: 20190103
  4. LAMALINE (PARACETAMOL, OPIUM, CAFEINE) [Concomitant]
     Indication: CANCER PAIN
     Dosage: 340 MG, AS NECESSARY
     Route: 048
     Dates: start: 20180530
  5. BACTRIM [Concomitant]
     Active Substance: SULFAMETHOXAZOLE\TRIMETHOPRIM
     Indication: INFLAMMATION
     Dosage: 960 MG, BID
     Route: 048
     Dates: start: 20181120
  6. PERINDOPRIL [Concomitant]
     Active Substance: PERINDOPRIL
     Indication: ISCHAEMIC STROKE
     Dosage: 2 MG, QD
     Route: 048
     Dates: start: 20181211
  7. KARDEGIC [Concomitant]
     Active Substance: ASPIRIN DL-LYSINE
     Indication: ISCHAEMIC STROKE
     Dosage: 160 MG, QD
     Route: 048
     Dates: start: 20181211, end: 20190201
  8. TAHOR [Concomitant]
     Active Substance: ATORVASTATIN CALCIUM
     Indication: ISCHAEMIC STROKE
     Dosage: 80 MG, QD
     Route: 048
     Dates: start: 20181211

REACTIONS (1)
  - Immune-mediated hepatitis [Recovered/Resolved]

NARRATIVE: CASE EVENT DATE: 20190122
